FAERS Safety Report 11822942 (Version 2)
Quarter: 2016Q1

REPORT INFORMATION
  Report Type: Report from Study
  Country: US (occurrence: US)
  Receive Date: 20151210
  Receipt Date: 20160105
  Transmission Date: 20160525
  Serious: Yes (Death, Hospitalization)
  Sender: FDA-Public Use
  Company Number: US-BAYER-2015-472607

PATIENT
  Age: 69 Year
  Sex: Female

DRUGS (1)
  1. ADEMPAS [Suspect]
     Active Substance: RIOCIGUAT
     Indication: PULMONARY ARTERIAL HYPERTENSION
     Dosage: 0.5 MG, TID
     Route: 048
     Dates: start: 20151013, end: 20151113

REACTIONS (3)
  - Pulmonary arterial hypertension [None]
  - Drug ineffective [None]
  - Death [Fatal]

NARRATIVE: CASE EVENT DATE: 20151020
